FAERS Safety Report 19240615 (Version 1)
Quarter: 2021Q2

REPORT INFORMATION
  Report Type: Report from Study
  Country: US (occurrence: US)
  Receive Date: 20210511
  Receipt Date: 20210511
  Transmission Date: 20210717
  Serious: Yes (Hospitalization, Other)
  Sender: FDA-Public Use
  Company Number: US-AMGEN-USACT2021069067

PATIENT
  Age: 20 Year
  Sex: Female
  Weight: 97.3 kg

DRUGS (2)
  1. TALIMOGENE LAHERPAREPVEC [Suspect]
     Active Substance: TALIMOGENE LAHERPAREPVEC
     Indication: MALIGNANT MELANOMA
     Dosage: 4 MILLILITER, CYCLICAL (21 DAYS) (CYCLE 1:4 ML (10^6) PFU/ML,FROM CYCLE 2:4 ML (10^8) PFU/ML)
     Route: 026
     Dates: start: 20200304, end: 20200325
  2. PEMBROLIZUMAB. [Suspect]
     Active Substance: PEMBROLIZUMAB
     Indication: MALIGNANT MELANOMA
     Dosage: 200 MILLIGRAM, CYCLICAL (OVER 30 MINUTES ON DAY 1)
     Route: 042
     Dates: start: 20200304, end: 20200325

REACTIONS (18)
  - Sinus tachycardia [Recovering/Resolving]
  - Tumour pain [Recovering/Resolving]
  - Peripheral motor neuropathy [Recovering/Resolving]
  - Failure to thrive [Recovering/Resolving]
  - Vomiting [Recovering/Resolving]
  - Urinary retention [Recovering/Resolving]
  - Insomnia [Recovering/Resolving]
  - Dyspnoea [Recovering/Resolving]
  - Muscular weakness [Recovering/Resolving]
  - Fatigue [Recovering/Resolving]
  - Decreased appetite [Recovering/Resolving]
  - Hypomagnesaemia [Recovering/Resolving]
  - Nausea [Recovering/Resolving]
  - Hypoalbuminaemia [Recovering/Resolving]
  - Constipation [Recovering/Resolving]
  - Vision blurred [Recovering/Resolving]
  - Weight decreased [Recovering/Resolving]
  - Hypotension [Recovering/Resolving]

NARRATIVE: CASE EVENT DATE: 202004
